FAERS Safety Report 16274302 (Version 1)
Quarter: 2019Q2

REPORT INFORMATION
  Report Type: Spontaneous
  Country: DE (occurrence: DE)
  Receive Date: 20190504
  Receipt Date: 20190504
  Transmission Date: 20190711
  Serious: Yes (Other)
  Sender: FDA-Public Use
  Company Number: DE-AUROBINDO-AUR-APL-2018-059723

PATIENT

DRUGS (5)
  1. FLECAINIDE ACETATE AUROBINDO TABLETS 100MG [Suspect]
     Active Substance: FLECAINIDE ACETATE
     Indication: ARRHYTHMIA
     Route: 048
  2. FLECAINIDE ACETATE AUROBINDO TABLETS 100MG [Interacting]
     Active Substance: FLECAINIDE ACETATE
     Dosage: 100 MILLIGRAM, TWO TIMES A DAY
     Route: 065
  3. VESIKUR [Interacting]
     Active Substance: SOLIFENACIN SUCCINATE
     Indication: PRODUCT USED FOR UNKNOWN INDICATION
     Dosage: 10 MILLIGRAM, UNKNOWN FREQ.
     Route: 065
  4. ASPIRIN. [Concomitant]
     Active Substance: ASPIRIN
     Indication: PRODUCT USED FOR UNKNOWN INDICATION
     Dosage: UNK, UNK UNK, UNKNOWN FREQ
     Route: 065
  5. TAMSULOSIN [Concomitant]
     Active Substance: TAMSULOSIN
     Indication: PRODUCT USED FOR UNKNOWN INDICATION
     Dosage: UNK UNK, UNKNOWN FREQ.
     Route: 065

REACTIONS (4)
  - Hot flush [Unknown]
  - Arrhythmia [Unknown]
  - Drug interaction [Unknown]
  - Drug intolerance [Unknown]
